FAERS Safety Report 13276831 (Version 1)
Quarter: 2017Q1

REPORT INFORMATION
  Report Type: Spontaneous
  Country: IT (occurrence: IT)
  Receive Date: 20170228
  Receipt Date: 20170228
  Transmission Date: 20170428
  Serious: Yes (Hospitalization)
  Sender: FDA-Public Use
  Company Number: IT-TEVA-743832ACC

PATIENT
  Age: 86 Year
  Sex: Female

DRUGS (6)
  1. SINTROM [Interacting]
     Active Substance: ACENOCOUMAROL
     Indication: ATRIAL FIBRILLATION
     Route: 048
     Dates: start: 20140101, end: 20170213
  2. EUTIROX - 50 MICROGRAMMI COMPRESSE [Concomitant]
     Indication: PRODUCT USED FOR UNKNOWN INDICATION
  3. TACHIPIRINA - 500 MG COMPRESSE [Interacting]
     Active Substance: ACETAMINOPHEN
     Indication: PYREXIA
     Route: 048
     Dates: start: 20170206, end: 20170213
  4. CLARITHROMYCIN. [Suspect]
     Active Substance: CLARITHROMYCIN
     Indication: PNEUMONIA BACTERIAL
     Route: 048
     Dates: start: 20170206, end: 20170209
  5. CONTROL - 1 MG COMPRESSE [Concomitant]
     Indication: PRODUCT USED FOR UNKNOWN INDICATION
  6. GASTROLOC - 20 MG COMPRESSE GASTRORESISTENTI [Concomitant]
     Indication: PRODUCT USED FOR UNKNOWN INDICATION

REACTIONS (7)
  - Weight decreased [Recovered/Resolved]
  - Respiratory failure [None]
  - Respiratory depression [Recovered/Resolved]
  - International normalised ratio increased [None]
  - Blood alkaline phosphatase decreased [None]
  - Pyrexia [Recovered/Resolved]
  - Drug interaction [Unknown]

NARRATIVE: CASE EVENT DATE: 20170213
